FAERS Safety Report 13274156 (Version 1)
Quarter: 2017Q1

REPORT INFORMATION
  Report Type: Report from Study
  Country: BR (occurrence: BR)
  Receive Date: 20170227
  Receipt Date: 20170227
  Transmission Date: 20170428
  Serious: Yes (Other)
  Sender: FDA-Public Use
  Company Number: BR-JNJFOC-20170222404

PATIENT
  Age: 60 Year
  Sex: Male

DRUGS (4)
  1. ENTECAVIR. [Concomitant]
     Active Substance: ENTECAVIR
     Route: 065
  2. DOXAZOSIN [Concomitant]
     Active Substance: DOXAZOSIN\DOXAZOSIN MESYLATE
     Route: 065
  3. FINASTERIDE. [Concomitant]
     Active Substance: FINASTERIDE
     Route: 065
  4. STELARA [Suspect]
     Active Substance: USTEKINUMAB
     Indication: PSORIASIS
     Route: 058
     Dates: start: 20130501

REACTIONS (2)
  - Pharyngitis [Recovered/Resolved]
  - Influenza [Recovered/Resolved]

NARRATIVE: CASE EVENT DATE: 201701
